FAERS Safety Report 7304979-X (Version None)
Quarter: 2011Q1

REPORT INFORMATION
  Report Type: 
  Country: None (occurrence: None)
  Receive Date: 20110222
  Receipt Date: 20100731
  Transmission Date: 20110831
  Serious: No
  Sender: FDA-Public Use
  Company Number: US-PFIZER INC-2010096435

PATIENT
  Sex: Female
  Weight: 63.4 kg

DRUGS (1)
  1. XALATAN [Suspect]
     Indication: ABNORMAL SENSATION IN EYE
     Dosage: 1 GTT, 1X/DAY
     Route: 047

REACTIONS (2)
  - EYE IRRITATION [None]
  - EYE PRURITUS [None]
